FAERS Safety Report 8390239-5 (Version None)
Quarter: 2012Q2

REPORT INFORMATION
  Report Type: 
  Country: None (occurrence: None)
  Receive Date: 20120529
  Receipt Date: 20120522
  Transmission Date: 20120825
  Serious: Yes (Other)
  Sender: FDA-Public Use
  Company Number: IT-PFIZER INC-2012061870

PATIENT
  Age: 63 Year
  Sex: Male

DRUGS (10)
  1. LAMIVUDINE [Concomitant]
     Dosage: 100 MG, UNK
     Route: 048
     Dates: start: 20110523, end: 20120110
  2. DOXORUBICIN HYDROCHLORIDE [Suspect]
     Indication: DIFFUSE LARGE B-CELL LYMPHOMA STAGE IV
     Dosage: 45 MG, CYCLIC
     Route: 042
     Dates: start: 20110728, end: 20111102
  3. BACTRIM [Concomitant]
     Dosage: UNK
     Route: 048
     Dates: start: 20110523, end: 20111110
  4. VINCRISTINE [Suspect]
     Indication: DIFFUSE LARGE B-CELL LYMPHOMA STAGE IV
     Dosage: 1 MG, CYCLIC
     Route: 041
     Dates: start: 20110523, end: 20111102
  5. GRANULOKINE [Concomitant]
     Dosage: 5 ML, UNK
     Route: 058
     Dates: start: 20111108, end: 20111112
  6. SPORANOX [Concomitant]
     Dosage: 40 ML, UNK
     Route: 048
  7. CYCLOPHOSPHAMIDE [Suspect]
     Indication: DIFFUSE LARGE B-CELL LYMPHOMA STAGE IV
     Dosage: 1320 MG, CYCLIC
     Route: 042
     Dates: start: 20110523, end: 20111102
  8. MABTHERA [Suspect]
     Indication: DIFFUSE LARGE B-CELL LYMPHOMA STAGE IV
     Dosage: 600 MG, CYCLIC
     Route: 042
     Dates: start: 20110530, end: 20111031
  9. PREDNISONE [Concomitant]
     Dosage: 100 MG, UNK
     Route: 048
  10. ISONIAZID [Concomitant]
     Dosage: 300 MG, UNK
     Route: 048

REACTIONS (3)
  - NEUTROPENIA [None]
  - HAEMATURIA [None]
  - PLATELET COUNT DECREASED [None]
